FAERS Safety Report 6511828-6 (Version None)
Quarter: 2009Q4

REPORT INFORMATION
  Report Type: 
  Country: None (occurrence: None)
  Receive Date: 20091222
  Receipt Date: 20091209
  Transmission Date: 20100525
  Serious: Yes (Other)
  Sender: FDA-Public Use
  Company Number: PHHY2009BR55035

PATIENT
  Age: 3 Year
  Sex: Male

DRUGS (1)
  1. LEPONEX [Suspect]
     Dosage: 3 TABLETS
     Route: 048
     Dates: start: 20091209

REACTIONS (2)
  - ACCIDENTAL EXPOSURE [None]
  - SOMNOLENCE [None]
